FAERS Safety Report 7528792-3 (Version None)
Quarter: 2011Q2

REPORT INFORMATION
  Report Type: 
  Country: None (occurrence: None)
  Receive Date: 20110607
  Receipt Date: 20101228
  Transmission Date: 20111010
  Serious: No
  Sender: FDA-Public Use
  Company Number: US-ASTRAZENECA-2010SE61333

PATIENT
  Sex: Female

DRUGS (4)
  1. PRILOSEC OTC [Suspect]
     Route: 048
  2. CRESTOR [Concomitant]
     Route: 048
  3. SEROQUEL XR [Suspect]
     Route: 048
  4. NEXIUM [Concomitant]

REACTIONS (6)
  - DRUG INEFFECTIVE [None]
  - CHILLS [None]
  - TREMOR [None]
  - DRUG WITHDRAWAL SYNDROME [None]
  - PILOERECTION [None]
  - DRUG DOSE OMISSION [None]
